FAERS Safety Report 7678792-8 (Version None)
Quarter: 2011Q3

REPORT INFORMATION
  Report Type: 
  Country: None (occurrence: None)
  Receive Date: 20110811
  Receipt Date: 20110802
  Transmission Date: 20111222
  Serious: Yes (Hospitalization)
  Sender: FDA-Public Use
  Company Number: US-ASTRAZENECA-2011SE46443

PATIENT
  Age: 58 Year
  Sex: Female

DRUGS (14)
  1. ZEROXIN [Concomitant]
     Indication: PAIN MANAGEMENT
  2. DAPTOMYCIN [Concomitant]
     Dosage: DAILY THROUGH PICC LINE
  3. COREG [Concomitant]
  4. METHADONE HYDROCHLORIDE [Concomitant]
  5. ACTOS [Concomitant]
  6. CYMBALTA [Concomitant]
  7. PREDNISONE [Concomitant]
  8. BUMEX [Concomitant]
  9. FOLIC ACID [Concomitant]
  10. CRESTOR [Suspect]
     Route: 048
  11. CALCIUM SUPPLEMENTS [Concomitant]
  12. AMITRIPTYLINE HCL [Concomitant]
  13. MIRALAX [Concomitant]
     Dosage: AS NEEDED
  14. LIDODERM [Concomitant]
     Route: 061

REACTIONS (11)
  - COGNITIVE DISORDER [None]
  - SLEEP APNOEA SYNDROME [None]
  - WHEELCHAIR USER [None]
  - ACTIVITIES OF DAILY LIVING IMPAIRED [None]
  - ARTHRALGIA [None]
  - CELLULITIS [None]
  - OBESITY [None]
  - HYPERTENSION [None]
  - BIPOLAR DISORDER [None]
  - PAIN [None]
  - TYPE 2 DIABETES MELLITUS [None]
